FAERS Safety Report 13339008 (Version 2)
Quarter: 2017Q2

REPORT INFORMATION
  Report Type: Report from Study
  Country: None (occurrence: NL)
  Receive Date: 20170315
  Receipt Date: 20170413
  Transmission Date: 20170830
  Serious: Yes (Other)
  Sender: FDA-Public Use
  Company Number: NL-ABBVIE-17P-114-1907265-00

PATIENT
  Age: 52 Year
  Sex: Female
  Weight: 74.5 kg

DRUGS (1)
  1. LUCRIN DEPOT [Suspect]
     Active Substance: LEUPROLIDE ACETATE
     Indication: ENDOMETRIOSIS
     Route: 050
     Dates: start: 20160614

REACTIONS (7)
  - Hot flush [Not Recovered/Not Resolved]
  - Ovarian cyst [Recovered/Resolved]
  - Uterine operation [Recovered/Resolved]
  - Ovarian cystectomy [Recovered/Resolved]
  - Palpitations [Recovered/Resolved]
  - Oophorectomy [Recovered/Resolved]
  - Uterine operation [Unknown]

NARRATIVE: CASE EVENT DATE: 201606
